FAERS Safety Report 9537845 (Version 1)
Quarter: 2013Q3

REPORT INFORMATION
  Report Type: Report from Study
  Country: DE (occurrence: DE)
  Receive Date: 20130919
  Receipt Date: 20130919
  Transmission Date: 20140515
  Serious: No
  Sender: FDA-Public Use
  Company Number: PHHY2013DE103078

PATIENT
  Sex: Female

DRUGS (19)
  1. AMN107 [Suspect]
     Indication: CHRONIC MYELOID LEUKAEMIA
     Dosage: 600 MG/DAY
     Route: 048
     Dates: start: 20110421
  2. AMN107 [Suspect]
     Dosage: 400 MG/DAY
     Route: 048
     Dates: start: 20110422, end: 20110512
  3. AMN107 [Suspect]
     Dosage: 600 MG/DAY
     Route: 048
     Dates: start: 20110513, end: 20110520
  4. AMN107 [Suspect]
     Dosage: 800 MG/DAY
     Route: 048
     Dates: start: 20110805
  5. SYREA [Concomitant]
     Dosage: UNK
     Dates: start: 199512, end: 20110513
  6. DECORTIN [Concomitant]
     Dosage: 5 MG, UNK
  7. ASTONIN H [Concomitant]
     Dosage: UNK
  8. TRIMIPRAMINE [Concomitant]
     Dosage: 100 MG, UNK
  9. OMEPRAZOLE [Concomitant]
     Dosage: 40 MG, UNK
  10. GODAMED [Concomitant]
     Dosage: UNK
     Dates: end: 20110521
  11. GODAMED [Concomitant]
     Dosage: UNK
     Dates: start: 20110602
  12. TAVEGYL [Concomitant]
     Dosage: UNK
  13. XAGRID [Concomitant]
     Dosage: 0.5 MG, UNK
     Dates: start: 20110610, end: 20111014
  14. XAGRID [Concomitant]
     Dosage: 0.5 UNK, UNK
     Dates: start: 20111115, end: 20120417
  15. MOVICOL [Concomitant]
     Dosage: AS NEEDED
  16. NOVALGINE [Concomitant]
     Dosage: AS NEEDED
     Dates: start: 20110520
  17. NOVALGINE [Concomitant]
     Dosage: UNK
     Dates: start: 20120103
  18. TORASEMID [Concomitant]
     Dosage: UNK UKN, UNK
     Dates: start: 20110916
  19. METOPROLOL [Concomitant]
     Dosage: 47.5 MG, UNK
     Dates: start: 20110916

REACTIONS (2)
  - Weight increased [Not Recovered/Not Resolved]
  - Alopecia [Recovered/Resolved]
